FAERS Safety Report 5268549-X (Version None)
Quarter: 2007Q1

REPORT INFORMATION
  Report Type: 
  Country: None (occurrence: None)
  Receive Date: 20070315
  Receipt Date: 20070315
  Transmission Date: 20070707
  Serious: Yes (Life-Threatening, Hospitalization, Disabling)
  Sender: FDA-Public Use
  Company Number: None

PATIENT
  Age: 91 Year
  Sex: Male
  Weight: 88.4514 kg

DRUGS (7)
  1. PLETAL [Suspect]
     Indication: ARRHYTHMIA
     Dosage: 100 MG BID PO   GREATER THAN 2 DAYS
     Route: 048
  2. GABAPENTIN [Concomitant]
  3. AVAPRO [Concomitant]
  4. FUROSEMIDE [Concomitant]
  5. LEVAQUIN [Concomitant]
  6. GLIPIZIDE [Concomitant]
  7. TYLENOL [Concomitant]

REACTIONS (1)
  - THROMBOCYTOPENIA [None]
